FAERS Safety Report 7516404-4 (Version None)
Quarter: 2011Q2

REPORT INFORMATION
  Report Type: 
  Country: None (occurrence: None)
  Receive Date: 20110601
  Receipt Date: 20110426
  Transmission Date: 20111010
  Serious: Yes (Hospitalization)
  Sender: FDA-Public Use
  Company Number: US-BAYER-2011-007970

PATIENT
  Age: 24 Year
  Weight: 85.261 kg

DRUGS (11)
  1. YAZ [Suspect]
     Indication: ACNE
     Route: 048
  2. MIDRIN [Concomitant]
     Indication: MIGRAINE
     Dosage: 325 MG, BID
     Route: 048
  3. GUAIFENESIN W/PHENYLEPHRINE [Concomitant]
     Dosage: 30 MG, PRN
     Route: 048
     Dates: start: 20090127
  4. MIDRIN [Concomitant]
     Dosage: 100 MG, UNK
     Route: 048
  5. GUAIFENESIN W/PHENYLEPHRINE [Concomitant]
     Indication: PRODUCT USED FOR UNKNOWN INDICATION
     Dosage: 600 MG, PRN
     Route: 048
     Dates: start: 20090127
  6. YASMIN [Suspect]
     Indication: ACNE
     Dosage: UNK
     Route: 048
     Dates: start: 20060101, end: 20090101
  7. MIDRIN [Concomitant]
     Dosage: 65 MG, UNK
     Route: 048
  8. DROSPIRENONE AND ETHINYL ESTRADIOL [Suspect]
     Indication: ACNE
     Route: 048
  9. ACYCLOVIR [Concomitant]
     Indication: HERPES SIMPLEX
     Dosage: 400 MG, TID
     Route: 048
  10. CODEINE W/GUAIFENESIN [Concomitant]
     Indication: COUGH
     Dosage: 2 MG/ML, PRN
     Route: 048
     Dates: start: 20090127
  11. CODEINE W/GUAIFENESIN [Concomitant]
     Dosage: 20 MG/ML, PRN
     Route: 048
     Dates: start: 20090127

REACTIONS (4)
  - INJURY [None]
  - PAIN [None]
  - CHOLECYSTECTOMY [None]
  - CHOLELITHIASIS [None]
